FAERS Safety Report 8430138-3 (Version None)
Quarter: 2012Q2

REPORT INFORMATION
  Report Type: 
  Country: None (occurrence: None)
  Receive Date: 20120612
  Receipt Date: 20120604
  Transmission Date: 20120825
  Serious: Yes (Other)
  Sender: FDA-Public Use
  Company Number: US-MERCK-1203USA00784

PATIENT
  Age: 54 Year
  Sex: Female
  Weight: 70 kg

DRUGS (11)
  1. CALCIUM (UNSPECIFIED) [Concomitant]
     Route: 065
  2. FOSAMAX [Suspect]
     Indication: OSTEOPOROSIS
     Route: 048
     Dates: start: 20010327
  3. FOSAMAX PLUS D [Suspect]
     Indication: OSTEOPENIA
     Route: 048
     Dates: start: 20060101, end: 20080101
  4. VITAMINS (UNSPECIFIED) [Concomitant]
     Route: 065
  5. FOSAMAX [Suspect]
     Route: 048
     Dates: start: 20080101, end: 20090101
  6. FOSAMAX [Suspect]
     Indication: OSTEOPENIA
     Route: 048
     Dates: start: 20010327
  7. FOSAMAX [Suspect]
     Route: 048
     Dates: start: 20000101, end: 20010327
  8. FOSAMAX [Suspect]
     Route: 048
     Dates: start: 20000101, end: 20010327
  9. FOLIC ACID [Concomitant]
     Route: 065
  10. VITAMIN E [Concomitant]
     Route: 065
  11. ASCORBIC ACID [Concomitant]
     Route: 065

REACTIONS (24)
  - ACNE [None]
  - CERVICAL DYSPLASIA [None]
  - POSTMENOPAUSAL HAEMORRHAGE [None]
  - ENDOMETRIAL HYPERPLASIA [None]
  - ENDOMETRIOSIS [None]
  - NASOPHARYNGITIS [None]
  - UPPER RESPIRATORY TRACT INFECTION [None]
  - SMEAR CERVIX ABNORMAL [None]
  - VAGINISMUS [None]
  - JAW FRACTURE [None]
  - URINARY TRACT INFECTION [None]
  - DRUG INTOLERANCE [None]
  - ATROPHIC VULVOVAGINITIS [None]
  - UTERINE LEIOMYOMA [None]
  - DYSPAREUNIA [None]
  - STRESS [None]
  - COUGH [None]
  - ADNEXA UTERI CYST [None]
  - TOOTH DISORDER [None]
  - FEMUR FRACTURE [None]
  - FIBROCYSTIC BREAST DISEASE [None]
  - FOOT FRACTURE [None]
  - OVARIAN CYST [None]
  - LOW TURNOVER OSTEOPATHY [None]
